FAERS Safety Report 5300307-X (Version None)
Quarter: 2007Q2

REPORT INFORMATION
  Report Type: 
  Country: None (occurrence: None)
  Receive Date: 20070418
  Receipt Date: 20070409
  Transmission Date: 20071010
  Serious: Yes (Other)
  Sender: FDA-Public Use
  Company Number: PHEH2007US02843

PATIENT
  Age: 59 Year
  Sex: Female
  Weight: 56.235 kg

DRUGS (7)
  1. ZOMETA [Suspect]
     Dosage: 4 EVERY FOUR WEEKS
     Dates: end: 20060801
  2. GEMZAR [Concomitant]
     Dosage: 1570 MG, UNK
     Route: 042
  3. NAVELBINE [Concomitant]
     Dosage: 30 MG, UNK
     Route: 042
  4. AVASTIN [Concomitant]
     Dosage: 15 MG/KG Q 3 WEEKS
  5. DECADRON [Concomitant]
     Dosage: 10 MG, UNK
     Route: 042
  6. ALIMTA [Concomitant]
     Indication: LUNG NEOPLASM MALIGNANT
     Dates: start: 20050630, end: 20050922
  7. CISPLATIN [Concomitant]
     Dosage: 119 MG, UNK
     Route: 042
     Dates: start: 20050630, end: 20050922

REACTIONS (10)
  - BONE DEBRIDEMENT [None]
  - BONE DISORDER [None]
  - BONE TRIMMING [None]
  - OSTEONECROSIS [None]
  - PAIN IN JAW [None]
  - PRIMARY SEQUESTRUM [None]
  - PYREXIA [None]
  - SEQUESTRECTOMY [None]
  - SINUSITIS [None]
  - X-RAY ABNORMAL [None]
